FAERS Safety Report 5701493-X (Version None)
Quarter: 2008Q2

REPORT INFORMATION
  Report Type: 
  Country: None (occurrence: None)
  Receive Date: 20080407
  Receipt Date: 20080327
  Transmission Date: 20081010
  Serious: Yes (Hospitalization, Other)
  Sender: FDA-Public Use
  Company Number: 2008AP000760

PATIENT
  Age: 76 Year
  Sex: Male

DRUGS (4)
  1. TERBINAFINE HCL [Suspect]
     Indication: ONYCHOMYCOSIS
     Dosage: 250 MG PO; QD
     Route: 048
     Dates: start: 20080219, end: 20080305
  2. AMITRIPTYLINE HCL [Concomitant]
  3. LANSOPRAZOLE [Concomitant]
  4. LORATADINE [Concomitant]

REACTIONS (1)
  - RASH MACULO-PAPULAR [None]
